FAERS Safety Report 9337669 (Version 1)
Quarter: 2013Q2

REPORT INFORMATION
  Report Type: Report from Study
  Country: GB (occurrence: GB)
  Receive Date: 20130607
  Receipt Date: 20130607
  Transmission Date: 20140414
  Serious: Yes (Death)
  Sender: FDA-Public Use
  Company Number: GB-CELGENEUS-167-FK228-13040748

PATIENT
  Sex: Male
  Weight: 78.8 kg

DRUGS (1)
  1. ROMIDEPSIN [Suspect]
     Indication: PERIPHERAL T-CELL LYMPHOMA UNSPECIFIED RECURRENT
     Route: 065
     Dates: start: 20121109

REACTIONS (1)
  - Peripheral T-cell lymphoma unspecified [Fatal]
